FAERS Safety Report 8326983-5 (Version None)
Quarter: 2012Q2

REPORT INFORMATION
  Report Type: 
  Country: None (occurrence: None)
  Receive Date: 20120501
  Receipt Date: 20120425
  Transmission Date: 20120825
  Serious: Yes (Other)
  Sender: FDA-Public Use
  Company Number: US-ROCHE-792815

PATIENT
  Sex: Male
  Weight: 49.94 kg

DRUGS (1)
  1. ACCUTANE [Suspect]
     Indication: ACNE
     Route: 065
     Dates: start: 19890101, end: 19921231

REACTIONS (10)
  - CROHN'S DISEASE [None]
  - STRESS [None]
  - INFLAMMATORY BOWEL DISEASE [None]
  - GASTRIC ULCER [None]
  - SUICIDE ATTEMPT [None]
  - CHRONIC FATIGUE SYNDROME [None]
  - DEPRESSION [None]
  - COLITIS [None]
  - DEHYDRATION [None]
  - SUICIDAL IDEATION [None]
